FAERS Safety Report 6990883-3 (Version None)
Quarter: 2010Q3

REPORT INFORMATION
  Report Type: 
  Country: None (occurrence: None)
  Receive Date: 20100916
  Receipt Date: 20090702
  Transmission Date: 20110219
  Serious: Yes (Other)
  Sender: FDA-Public Use
  Company Number: HQWYE988103OCT03

PATIENT
  Sex: Female

DRUGS (3)
  1. PREMARIN [Suspect]
     Dosage: UNSPECIFIED
     Route: 048
     Dates: start: 19830101
  2. PROVERA [Suspect]
     Dosage: UNSPECIFIED
     Route: 048
     Dates: start: 19830101
  3. PREMPRO [Suspect]
     Dosage: UNSPECIFIED
     Route: 048
     Dates: end: 20010101

REACTIONS (1)
  - OVARIAN CANCER METASTATIC [None]
